FAERS Safety Report 17401115 (Version 3)
Quarter: 2020Q4

REPORT INFORMATION
  Report Type: Spontaneous
  Country: JP (occurrence: JP)
  Receive Date: 20200211
  Receipt Date: 20201224
  Transmission Date: 20210113
  Serious: Yes (Death, Hospitalization, Other)
  Sender: FDA-Public Use
  Company Number: JP-SA-2020SA034638

PATIENT

DRUGS (14)
  1. METHYLPREDNISOLONE. [Suspect]
     Active Substance: METHYLPREDNISOLONE
     Indication: ATYPICAL MYCOBACTERIAL INFECTION
     Dosage: PULSE THERAPY STARTED ON DAY 16 TO DAY 19
  2. PREDNISOLONE. [Suspect]
     Active Substance: PREDNISOLONE
     Indication: MYCOBACTERIAL INFECTION
     Dosage: 40 MG, QD (AS AFTER TREATMENT)
     Route: 048
  3. LEVOFLOXACIN. [Concomitant]
     Active Substance: LEVOFLOXACIN
     Indication: ATYPICAL MYCOBACTERIAL INFECTION
  4. RABEPRAZOLE [Concomitant]
     Active Substance: RABEPRAZOLE
  5. RIFADINE [Suspect]
     Active Substance: RIFAMPIN
     Indication: ATYPICAL MYCOBACTERIAL INFECTION
  6. CLARITHROMYCIN. [Concomitant]
     Active Substance: CLARITHROMYCIN
     Indication: ATYPICAL MYCOBACTERIAL INFECTION
  7. BISOPROLOL FUMARATE. [Concomitant]
     Active Substance: BISOPROLOL FUMARATE
  8. PREDNISOLONE. [Suspect]
     Active Substance: PREDNISOLONE
     Dosage: 5 MG, QOD
     Route: 048
  9. CLOPIDOGREL [Concomitant]
     Active Substance: CLOPIDOGREL BISULFATE
  10. AZOSEMIDE [Concomitant]
     Active Substance: AZOSEMIDE
  11. PREDNISOLONE. [Suspect]
     Active Substance: PREDNISOLONE
     Dosage: GRADUALLY DECREASED
     Route: 048
  12. ETHAMBUTOL [Concomitant]
     Active Substance: ETHAMBUTOL HYDROCHLORIDE
     Indication: ATYPICAL MYCOBACTERIAL INFECTION
  13. EPLERENONE. [Concomitant]
     Active Substance: EPLERENONE
  14. NICORANDIL [Concomitant]
     Active Substance: NICORANDIL

REACTIONS (10)
  - Hypoalbuminaemia [Unknown]
  - Hemiplegia [Fatal]
  - Cerebral artery embolism [Fatal]
  - Oedema peripheral [Unknown]
  - Disseminated aspergillosis [Fatal]
  - Nephrotic syndrome [Unknown]
  - Aspergillus infection [Fatal]
  - Cognitive disorder [Fatal]
  - Neurologic neglect syndrome [Fatal]
  - Cerebral haemorrhage [Fatal]
